FAERS Safety Report 19749337 (Version 1)
Quarter: 2021Q3

REPORT INFORMATION
  Report Type: Spontaneous
  Country: US (occurrence: US)
  Receive Date: 20210823
  Receipt Date: 20210823
  Transmission Date: 20211014
  Serious: No
  Sender: FDA-Public Use
  Company Number: None

PATIENT
  Age: 70 Year
  Sex: Female

DRUGS (1)
  1. XELJANZ XR [Suspect]
     Active Substance: TOFACITINIB CITRATE
     Indication: RHEUMATOID ARTHRITIS
     Route: 048
     Dates: start: 202104

REACTIONS (6)
  - Arthralgia [None]
  - Neoplasm malignant [None]
  - Gait inability [None]
  - Therapeutic product effect decreased [None]
  - Joint swelling [None]
  - Therapy interrupted [None]
